FAERS Safety Report 6527483-5 (Version None)
Quarter: 2010Q1

REPORT INFORMATION
  Report Type: 
  Country: None (occurrence: None)
  Receive Date: 20100105
  Receipt Date: 20091222
  Transmission Date: 20100710
  Serious: Yes (Hospitalization)
  Sender: FDA-Public Use
  Company Number: GB-MYLANLABS-2009S1021782

PATIENT
  Age: 2 Year
  Sex: Male
  Weight: 12 kg

DRUGS (1)
  1. PROPRANOLOL [Suspect]
     Indication: LONG QT SYNDROME

REACTIONS (1)
  - HYPOGLYCAEMIC UNCONSCIOUSNESS [None]
